FAERS Safety Report 16132799 (Version 2)
Quarter: 2019Q2

REPORT INFORMATION
  Report Type: Spontaneous
  Country: US (occurrence: US)
  Receive Date: 20190329
  Receipt Date: 20190618
  Transmission Date: 20190711
  Serious: No
  Sender: FDA-Public Use
  Company Number: US-PFIZER INC-2019126207

PATIENT
  Age: 70 Year
  Sex: Female
  Weight: 75.75 kg

DRUGS (2)
  1. NIVESTYM [Suspect]
     Active Substance: FILGRASTIM-AAFI
     Indication: NEUTROPENIA
     Dosage: 480 MG, SINGLE
     Route: 058
     Dates: start: 20190315, end: 20190315
  2. NIVESTYM [Suspect]
     Active Substance: FILGRASTIM-AAFI
     Dosage: 480 MG, SINGLE
     Route: 058
     Dates: start: 20190318, end: 20190318

REACTIONS (1)
  - Tachycardia [Unknown]
